FAERS Safety Report 5525706-2 (Version None)
Quarter: 2007Q4

REPORT INFORMATION
  Report Type: 
  Country: None (occurrence: None)
  Receive Date: 20071126
  Receipt Date: 20071113
  Transmission Date: 20080405
  Serious: Yes (Other)
  Sender: FDA-Public Use
  Company Number: FR-ROCHE-527906

PATIENT
  Age: 15 Month
  Sex: Male
  Weight: 10 kg

DRUGS (5)
  1. ROCEPHIN [Suspect]
     Dosage: FORM REPORTED: INJECTABLE SOLUTION
     Route: 058
     Dates: start: 20071024, end: 20071026
  2. ADVIL LIQUI-GELS [Concomitant]
  3. ACETAMINOPHEN [Concomitant]
  4. AMOXICILLIN [Concomitant]
  5. AUGMENTIN [Concomitant]

REACTIONS (2)
  - HYPOTHERMIA [None]
  - PYREXIA [None]
